FAERS Safety Report 6994556-2 (Version None)
Quarter: 2010Q3

REPORT INFORMATION
  Report Type: 
  Country: None (occurrence: None)
  Receive Date: 20100917
  Receipt Date: 20100909
  Transmission Date: 20110219
  Serious: Yes (Other)
  Sender: FDA-Public Use
  Company Number: US-AMGEN-QUU437088

PATIENT
  Sex: Female
  Weight: 111.7 kg

DRUGS (8)
  1. NPLATE [Suspect]
     Indication: IDIOPATHIC THROMBOCYTOPENIC PURPURA
     Dates: start: 20100210
  2. CELEXA [Concomitant]
  3. LIPITOR [Concomitant]
  4. GLUCOSAMINE [Concomitant]
  5. LOTENSIN [Concomitant]
  6. SYNTHROID [Concomitant]
  7. XANAX [Concomitant]
  8. CALCIUM [Concomitant]

REACTIONS (3)
  - EPISTAXIS [None]
  - PLATELET COUNT ABNORMAL [None]
  - THERAPEUTIC RESPONSE DECREASED [None]
